FAERS Safety Report 12655026 (Version 1)
Quarter: 2016Q3

REPORT INFORMATION
  Report Type: Spontaneous
  Country: US (occurrence: US)
  Receive Date: 20160816
  Receipt Date: 20160816
  Transmission Date: 20161109
  Serious: No
  Sender: FDA-Public Use
  Company Number: US-BEH-2016072267

PATIENT
  Sex: Female
  Weight: 69.39 kg

DRUGS (26)
  1. ZOLOFT [Concomitant]
     Active Substance: SERTRALINE HYDROCHLORIDE
  2. NITROSTAT [Concomitant]
     Active Substance: NITROGLYCERIN
  3. ALBUTEROL                          /00139501/ [Concomitant]
     Active Substance: ALBUTEROL
  4. DIPHENHYDRAMINE. [Concomitant]
     Active Substance: DIPHENHYDRAMINE
  5. NYSTATIN W/TRIAMCINOLONE           /00945901/ [Concomitant]
  6. XYZAL [Concomitant]
     Active Substance: LEVOCETIRIZINE DIHYDROCHLORIDE
  7. PROBIOTIC                          /06395501/ [Concomitant]
     Active Substance: BIFIDOBACTERIUM ANIMALIS SUBSP. LACTIS
  8. XOLAIR [Concomitant]
     Active Substance: OMALIZUMAB
  9. HIZENTRA [Suspect]
     Active Substance: HUMAN IMMUNOGLOBULIN G
     Dosage: UNK
     Route: 058
  10. HIZENTRA [Suspect]
     Active Substance: HUMAN IMMUNOGLOBULIN G
     Dosage: 6 G, QW
     Route: 058
     Dates: start: 20121214
  11. SINGULAIR [Concomitant]
     Active Substance: MONTELUKAST SODIUM
  12. FLEXERIL [Concomitant]
     Active Substance: CYCLOBENZAPRINE HYDROCHLORIDE
  13. CEFTRIAXONE. [Concomitant]
     Active Substance: CEFTRIAXONE
  14. TYLENOL [Concomitant]
     Active Substance: ACETAMINOPHEN
  15. HIZENTRA [Suspect]
     Active Substance: HUMAN IMMUNOGLOBULIN G
     Indication: IMMUNODEFICIENCY COMMON VARIABLE
     Route: 058
  16. SYMBICORT [Concomitant]
     Active Substance: BUDESONIDE\FORMOTEROL FUMARATE DIHYDRATE
  17. RANITIDINE. [Concomitant]
     Active Substance: RANITIDINE
  18. OXYGEN. [Concomitant]
     Active Substance: OXYGEN
  19. PROAIR HFA [Concomitant]
     Active Substance: ALBUTEROL SULFATE
  20. TRAMADOL. [Concomitant]
     Active Substance: TRAMADOL
  21. LASIX [Concomitant]
     Active Substance: FUROSEMIDE
  22. SYNTHROID [Concomitant]
     Active Substance: LEVOTHYROXINE SODIUM
  23. PREDNISONE. [Concomitant]
     Active Substance: PREDNISONE
  24. LOVENOX [Concomitant]
     Active Substance: ENOXAPARIN SODIUM
  25. OCUVITE [Concomitant]
     Active Substance: VITAMINS
  26. NASONEX [Concomitant]
     Active Substance: MOMETASONE FUROATE

REACTIONS (1)
  - Sinusitis [Unknown]
